FAERS Safety Report 14030870 (Version 2)
Quarter: 2017Q4

REPORT INFORMATION
  Report Type: Spontaneous
  Country: FR (occurrence: FR)
  Receive Date: 20171002
  Receipt Date: 20171110
  Transmission Date: 20180321
  Serious: Yes (Hospitalization)
  Sender: FDA-Public Use
  Company Number: PHHY2017FR141147

PATIENT
  Age: 23 Year
  Sex: Female

DRUGS (30)
  1. METHOTREXATE MYLAN [Suspect]
     Active Substance: METHOTREXATE SODIUM
     Indication: ACUTE LYMPHOCYTIC LEUKAEMIA RECURRENT
     Dosage: 15 MG, CYCLIC
     Route: 037
     Dates: start: 20170810
  2. METHOTREXATE MYLAN [Suspect]
     Active Substance: METHOTREXATE SODIUM
     Dosage: 15 MG, CYCLIC
     Route: 037
     Dates: start: 20170817
  3. DEPO-MEDROL [Suspect]
     Active Substance: METHYLPREDNISOLONE ACETATE
     Dosage: 40 MG, CYCLIC
     Route: 037
     Dates: start: 20170814
  4. TRIFLUCAN [Suspect]
     Active Substance: FLUCONAZOLE
     Dosage: UNK
     Route: 065
     Dates: start: 20170828
  5. AMIKLIN [Concomitant]
     Active Substance: AMIKACIN SULFATE
     Indication: ESCHERICHIA BACTERAEMIA
  6. AMIKLIN [Concomitant]
     Active Substance: AMIKACIN SULFATE
     Indication: COLITIS
  7. TAZOCILLINE [Concomitant]
     Active Substance: PIPERACILLIN SODIUM\TAZOBACTAM SODIUM
     Indication: ESCHERICHIA BACTERAEMIA
  8. BLINATUMOMAB [Concomitant]
     Active Substance: BLINATUMOMAB
     Indication: ACUTE LYMPHOCYTIC LEUKAEMIA RECURRENT
     Route: 065
     Dates: start: 20170831
  9. TAZOCILLINE [Concomitant]
     Active Substance: PIPERACILLIN SODIUM\TAZOBACTAM SODIUM
     Indication: SEPTIC SHOCK
     Route: 065
     Dates: start: 20170823, end: 20170825
  10. TAZOCILLINE [Concomitant]
     Active Substance: PIPERACILLIN SODIUM\TAZOBACTAM SODIUM
     Indication: COLITIS
  11. ARACYTINE [Suspect]
     Active Substance: CYTARABINE
     Dosage: 40 MG, CYCLIC
     Route: 037
     Dates: start: 20170817
  12. TIENAM [Suspect]
     Active Substance: CILASTATIN SODIUM\IMIPENEM
     Indication: SEPTIC SHOCK
     Route: 065
     Dates: start: 20170820
  13. TIENAM [Suspect]
     Active Substance: CILASTATIN SODIUM\IMIPENEM
     Indication: ESCHERICHIA BACTERAEMIA
     Dosage: 3 DF, QD
     Route: 042
     Dates: start: 20170823
  14. VANCOMYCIN SANDOZ [Suspect]
     Active Substance: VANCOMYCIN
     Indication: SEPTIC SHOCK
     Route: 065
     Dates: start: 20170820
  15. DEPO-MEDROL [Suspect]
     Active Substance: METHYLPREDNISOLONE ACETATE
     Indication: ACUTE LYMPHOCYTIC LEUKAEMIA RECURRENT
     Dosage: 40 MG, CYCLIC
     Route: 037
     Dates: start: 20170810
  16. METRONIDAZOLE B BRAUN [Suspect]
     Active Substance: METRONIDAZOLE
     Dosage: UNK
     Route: 065
  17. VANCOMYCIN SANDOZ [Suspect]
     Active Substance: VANCOMYCIN
     Indication: ESCHERICHIA BACTERAEMIA
     Dosage: 2500 MG, QD
     Route: 042
     Dates: start: 20170825
  18. VANCOMYCIN SANDOZ [Suspect]
     Active Substance: VANCOMYCIN
     Indication: COLITIS
  19. METRONIDAZOLE B BRAUN [Suspect]
     Active Substance: METRONIDAZOLE
     Route: 065
     Dates: start: 20170829, end: 20170830
  20. TRIFLUCAN [Suspect]
     Active Substance: FLUCONAZOLE
     Indication: FUNGAL INFECTION
     Dosage: 400 MG, QD
     Route: 042
     Dates: start: 20170825, end: 20170826
  21. DEPO-MEDROL [Suspect]
     Active Substance: METHYLPREDNISOLONE ACETATE
     Dosage: 40 MG, CYCLIC
     Route: 037
     Dates: start: 20170817
  22. ARACYTINE [Suspect]
     Active Substance: CYTARABINE
     Dosage: 40 MG, CYCLIC
     Route: 037
     Dates: start: 20170814
  23. METHOTREXATE MYLAN [Suspect]
     Active Substance: METHOTREXATE SODIUM
     Dosage: 15 MG, CYCLIC
     Route: 037
     Dates: start: 20170814
  24. ARACYTINE [Suspect]
     Active Substance: CYTARABINE
     Indication: ACUTE LYMPHOCYTIC LEUKAEMIA RECURRENT
     Dosage: 40 MG, CYCLIC
     Route: 037
     Dates: start: 20170810
  25. ACICLOVIR MYLAN [Suspect]
     Active Substance: ACYCLOVIR
     Indication: HERPES SIMPLEX
     Dosage: 700 MG, TID
     Route: 042
     Dates: start: 20170824
  26. TIENAM [Suspect]
     Active Substance: CILASTATIN SODIUM\IMIPENEM
     Indication: COLITIS
     Route: 065
     Dates: start: 20170825
  27. AMBISOME [Suspect]
     Active Substance: AMPHOTERICIN B
     Indication: FUNGAL INFECTION
     Dosage: 210 MG, QD
     Route: 042
     Dates: start: 20170828, end: 20170830
  28. AMIKLIN [Concomitant]
     Active Substance: AMIKACIN SULFATE
     Indication: SEPTIC SHOCK
     Route: 065
     Dates: start: 20170820
  29. ORACILLINE [Concomitant]
     Active Substance: PENICILLIN V
     Indication: PRODUCT USED FOR UNKNOWN INDICATION
     Dosage: 1 MIU IN THE MORNING AND IN THE EVENING
     Route: 065
  30. LUTERAN [Concomitant]
     Active Substance: CHLORMADINONE ACETATE
     Indication: PRODUCT USED FOR UNKNOWN INDICATION
     Dosage: 1 DF, QD
     Route: 065

REACTIONS (9)
  - Rash [Recovering/Resolving]
  - Skin maceration [Recovering/Resolving]
  - Palmar-plantar erythrodysaesthesia syndrome [Recovering/Resolving]
  - Pain in extremity [Recovering/Resolving]
  - Ulcer [Recovering/Resolving]
  - Aplasia [Recovering/Resolving]
  - Cheilitis [Recovering/Resolving]
  - Skin exfoliation [Recovering/Resolving]
  - Oedema [Recovering/Resolving]

NARRATIVE: CASE EVENT DATE: 20170830
